FAERS Safety Report 8571735 (Version 3)
Quarter: 2013Q2

REPORT INFORMATION
  Report Type: Spontaneous
  Country: US (occurrence: US)
  Receive Date: 20120521
  Receipt Date: 20130507
  Transmission Date: 20140414
  Serious: Yes (Hospitalization)
  Sender: FDA-Public Use
  Company Number: US-BAYER-2012-049076

PATIENT
  Age: 28 Year
  Sex: Female
  Weight: 69.84 kg

DRUGS (5)
  1. YASMIN [Suspect]
     Dosage: UNK
     Dates: start: 201011, end: 201102
  2. YAZ [Suspect]
     Dosage: UNK
     Dates: start: 201011, end: 201102
  3. PROMETHAZINE [Concomitant]
     Dosage: 25 MG, UNK
     Route: 048
  4. AZITHROMYCIN [Concomitant]
     Dosage: 250 MG, UNK
  5. VENLAFAXINE [Concomitant]

REACTIONS (1)
  - Pulmonary embolism [None]
